FAERS Safety Report 4861472-1 (Version None)
Quarter: 2005Q4

REPORT INFORMATION
  Report Type: 
  Country: None (occurrence: None)
  Receive Date: 20051129
  Receipt Date: 20050429
  Transmission Date: 20060501
  Serious: Yes (Other)
  Sender: FDA-Public Use
  Company Number: WAES 0505USA00005

PATIENT
  Age: 65 Year
  Sex: Female
  Weight: 81.1939 kg

DRUGS (2)
  1. FOSAMAX [Suspect]
     Indication: OSTEOPOROSIS
     Dosage: PO
     Route: 048
     Dates: start: 20050214, end: 20050401
  2. LIPITOR [Concomitant]

REACTIONS (2)
  - PAIN [None]
  - RASH PRURITIC [None]
